FAERS Safety Report 12854733 (Version 2)
Quarter: 2016Q4

REPORT INFORMATION
  Report Type: Spontaneous
  Country: US (occurrence: US)
  Receive Date: 20161017
  Receipt Date: 20161026
  Transmission Date: 20170207
  Serious: Yes (Other)
  Sender: FDA-Public Use
  Company Number: US-EMD SERONO-8112421

PATIENT
  Sex: Male

DRUGS (1)
  1. REBIF [Suspect]
     Active Substance: INTERFERON BETA-1A
     Indication: MULTIPLE SCLEROSIS
     Route: 058

REACTIONS (6)
  - Insomnia [Unknown]
  - Urinary retention [Unknown]
  - Back pain [Unknown]
  - Restless legs syndrome [Unknown]
  - Fatigue [Unknown]
  - Neuropathy peripheral [Unknown]
